FAERS Safety Report 4386717-6 (Version None)
Quarter: 2004Q2

REPORT INFORMATION
  Report Type: 
  Country: None (occurrence: None)
  Receive Date: 20040607
  Receipt Date: 20030408
  Transmission Date: 20050107
  Serious: Yes (Other)
  Sender: FDA-Public Use
  Company Number: 331351

PATIENT
  Age: 40 Year
  Sex: Female

DRUGS (2)
  1. ACCUTANE [Suspect]
     Indication: ACNE
     Dosage: 60 MG DAILY ORAL
     Route: 048
     Dates: start: 20011206, end: 20020201
  2. ACCUTANE [Suspect]
     Indication: HIDRADENITIS
     Dosage: 60 MG DAILY ORAL
     Route: 048
     Dates: start: 20011206, end: 20020201

REACTIONS (5)
  - APATHY [None]
  - DEPRESSION [None]
  - HYPERSOMNIA [None]
  - LETHARGY [None]
  - SLEEP DISORDER [None]
